FAERS Safety Report 25505822 (Version 1)
Quarter: 2025Q3

REPORT INFORMATION
  Report Type: Spontaneous
  Country: ZA (occurrence: ZA)
  Receive Date: 20250702
  Receipt Date: 20250702
  Transmission Date: 20251021
  Serious: Yes (Other)
  Sender: PFIZER
  Company Number: ZA-PFIZER INC-PV202500077286

PATIENT
  Sex: Female

DRUGS (8)
  1. METHOTREXATE SODIUM [Suspect]
     Active Substance: METHOTREXATE SODIUM
     Indication: Back disorder
     Dates: start: 2013, end: 2020
  2. METHOTREXATE SODIUM [Suspect]
     Active Substance: METHOTREXATE SODIUM
     Indication: Osteoarthritis
     Dates: start: 20220919
  3. METHOTREXATE SODIUM [Suspect]
     Active Substance: METHOTREXATE SODIUM
     Indication: Rheumatoid arthritis
     Dates: start: 2023
  4. SULFASALAZINE [Concomitant]
     Active Substance: SULFASALAZINE
  5. CHLOROQUINE [Concomitant]
     Active Substance: CHLOROQUINE
     Dates: start: 20220919
  6. ARAVA [Concomitant]
     Active Substance: LEFLUNOMIDE
     Dates: start: 2021, end: 2022
  7. PREDNISONE [Concomitant]
     Active Substance: PREDNISONE
  8. CHLOROQUINE SULFATE [Concomitant]
     Active Substance: CHLOROQUINE SULFATE

REACTIONS (4)
  - Osteoarthritis [Unknown]
  - Spinal osteoarthritis [Unknown]
  - Rheumatoid arthritis [Unknown]
  - Treatment failure [Unknown]
